FAERS Safety Report 8115844-2 (Version None)
Quarter: 2012Q1

REPORT INFORMATION
  Report Type: 
  Country: None (occurrence: None)
  Receive Date: 20120123
  Receipt Date: 20120116
  Transmission Date: 20120608
  Serious: Yes (Other)
  Sender: FDA-Public Use
  Company Number: 2011028755

PATIENT
  Age: 56 Year
  Sex: Female
  Weight: 72.5755 kg

DRUGS (19)
  1. ZEMAIRA [Suspect]
     Indication: CHRONIC OBSTRUCTIVE PULMONARY DISEASE
     Dosage: SEE IMAGE
     Route: 042
     Dates: start: 20111013
  2. ZEMAIRA [Suspect]
     Indication: ALPHA-1 ANTI-TRYPSIN DEFICIENCY
     Dosage: SEE IMAGE
     Route: 042
     Dates: start: 20111013
  3. ZEMAIRA [Suspect]
     Indication: CHRONIC OBSTRUCTIVE PULMONARY DISEASE
     Dosage: SEE IMAGE
     Route: 042
     Dates: start: 20120105
  4. ZEMAIRA [Suspect]
     Indication: ALPHA-1 ANTI-TRYPSIN DEFICIENCY
     Dosage: SEE IMAGE
     Route: 042
     Dates: start: 20120105
  5. ZEMAIRA [Suspect]
     Indication: CHRONIC OBSTRUCTIVE PULMONARY DISEASE
     Dosage: SEE IMAGE
     Route: 042
     Dates: start: 20090801
  6. ZEMAIRA [Suspect]
     Indication: ALPHA-1 ANTI-TRYPSIN DEFICIENCY
     Dosage: SEE IMAGE
     Route: 042
     Dates: start: 20090801
  7. ZEMAIRA [Suspect]
  8. MUCINEX [Concomitant]
  9. ZEMAIRA [Suspect]
  10. SINGULAIR [Concomitant]
  11. LISINOPRIL [Concomitant]
  12. ADVAIR DISKUS 100/50 [Concomitant]
  13. LEXAPRO [Concomitant]
  14. ZEMAIRA [Suspect]
  15. ESTRACE [Concomitant]
  16. PRO AIR (PROCATEROL HYDROCHLORIDE) [Concomitant]
  17. PRINIVIL [Concomitant]
  18. SPIRIVA [Concomitant]
  19. ACTIVELLA (OESTRANORM) [Concomitant]

REACTIONS (7)
  - RESPIRATORY TRACT CONGESTION [None]
  - NASOPHARYNGITIS [None]
  - SINUSITIS [None]
  - LOWER RESPIRATORY TRACT INFECTION [None]
  - CONDITION AGGRAVATED [None]
  - CHRONIC OBSTRUCTIVE PULMONARY DISEASE [None]
  - VIRAL UPPER RESPIRATORY TRACT INFECTION [None]
